FAERS Safety Report 16304125 (Version 2)
Quarter: 2019Q3

REPORT INFORMATION
  Report Type: Report from Study
  Country: JP (occurrence: JP)
  Receive Date: 20190513
  Receipt Date: 20190805
  Transmission Date: 20191004
  Serious: Yes (Hospitalization, Other)
  Sender: FDA-Public Use
  Company Number: JP-ACTELION-A-CH2018-176295

PATIENT
  Age: 53 Year
  Sex: Female

DRUGS (41)
  1. PREDONINE [Suspect]
     Active Substance: PREDNISOLONE
     Dosage: 12.5 MG, QD
     Route: 048
     Dates: start: 20160702, end: 20160711
  2. NEXIUM [Concomitant]
     Active Substance: ESOMEPRAZOLE MAGNESIUM
  3. LOPEMIN [Concomitant]
     Active Substance: LOPERAMIDE HYDROCHLORIDE
  4. OPSUMIT [Suspect]
     Active Substance: MACITENTAN
     Indication: PULMONARY ARTERIAL HYPERTENSION
     Dosage: 10 MG, QD
     Route: 048
     Dates: start: 20160708
  5. EPOPROSTENOL ACT [Suspect]
     Active Substance: EPOPROSTENOL
     Indication: PULMONARY ARTERIAL HYPERTENSION
     Dosage: 1.5 MG, BID
     Route: 042
     Dates: start: 20160708, end: 20160708
  6. EPOPROSTENOL ACT [Suspect]
     Active Substance: EPOPROSTENOL
     Dosage: 1 DF, QD
     Route: 042
     Dates: start: 20170111
  7. PREDONINE [Suspect]
     Active Substance: PREDNISOLONE
     Dosage: 15 MG, QD
     Route: 048
     Dates: start: 20160624
  8. PREDONINE [Suspect]
     Active Substance: PREDNISOLONE
     Dosage: 15 MG, QD
     Route: 048
     Dates: start: 20160726, end: 20160808
  9. REVATIO [Concomitant]
     Active Substance: SILDENAFIL CITRATE
  10. KALGUT [Concomitant]
     Active Substance: DENOPAMINE
  11. LAMISIL [Concomitant]
     Active Substance: TERBINAFINE HYDROCHLORIDE
  12. VITAMEDIN [Concomitant]
     Active Substance: CYANOCOBALAMIN\PYRIDOXINE HYDROCHLORIDE\THIAMINE
  13. METHYCOBAL [Concomitant]
     Active Substance: METHYLCOBALAMIN
  14. PREDONINE [Suspect]
     Active Substance: PREDNISOLONE
     Indication: INTERSTITIAL LUNG DISEASE
     Dosage: 20 MG, QD
     Route: 042
     Dates: start: 20160615
  15. PREDONINE [Suspect]
     Active Substance: PREDNISOLONE
     Dosage: 20 MG, QD
     Route: 048
     Dates: start: 20160712, end: 20160725
  16. PREDONINE [Suspect]
     Active Substance: PREDNISOLONE
     Dosage: 5 MG, QD
     Route: 048
     Dates: start: 20160906, end: 20171001
  17. FUROSEMIDE. [Concomitant]
     Active Substance: FUROSEMIDE
  18. OLOPATADINE HYDROCHLORIDE. [Concomitant]
     Active Substance: OLOPATADINE HYDROCHLORIDE
  19. NEUROVITAN [Concomitant]
     Active Substance: VITAMINS
  20. PREDONINE [Suspect]
     Active Substance: PREDNISOLONE
     Dosage: 20 MG, QD
     Route: 048
     Dates: start: 20160622
  21. PREDONINE [Suspect]
     Active Substance: PREDNISOLONE
     Dosage: 5 MG, QD
     Route: 048
     Dates: start: 20171016
  22. SPIRONOLACTONE. [Concomitant]
     Active Substance: SPIRONOLACTONE
  23. SLOW-K [Concomitant]
     Active Substance: POTASSIUM CHLORIDE
  24. PREDONINE [Suspect]
     Active Substance: PREDNISOLONE
     Dosage: 10 MG, QD
     Route: 048
     Dates: start: 20160809, end: 20160822
  25. DIART [Concomitant]
     Active Substance: AZOSEMIDE
  26. CEREKINON [Concomitant]
     Active Substance: TRIMEBUTINE
  27. CALONAL [Concomitant]
     Active Substance: ACETAMINOPHEN
  28. BIO-THREE [Concomitant]
     Active Substance: HERBALS
  29. CORTRIL [Concomitant]
     Active Substance: HYDROCORTISONE
  30. THYRADIN S [Concomitant]
     Active Substance: LEVOTHYROXINE SODIUM
  31. PREDONINE [Suspect]
     Active Substance: PREDNISOLONE
     Dosage: 4.5 MG, QD
     Route: 048
     Dates: start: 20171002, end: 20171015
  32. SAMSCA [Concomitant]
     Active Substance: TOLVAPTAN
  33. FERROUS CITRATE NA [Concomitant]
     Active Substance: SODIUM FERROUS CITRATE
  34. ENTERONON-R [Concomitant]
     Active Substance: PROBIOTICS NOS
  35. MIYA-BM [Concomitant]
     Active Substance: CLOSTRIDIUM BUTYRICUM SPORES STRAIN M-55
  36. OXYGEN. [Concomitant]
     Active Substance: OXYGEN
  37. LYRICA [Concomitant]
     Active Substance: PREGABALIN
  38. LIXIANA [Concomitant]
     Active Substance: EDOXABAN TOSYLATE
  39. PREDONINE [Suspect]
     Active Substance: PREDNISOLONE
     Dosage: 7.5 MG, QD
     Route: 048
     Dates: start: 20160823, end: 20160905
  40. FEBURIC [Concomitant]
     Active Substance: FEBUXOSTAT
  41. BAKTAR [Concomitant]
     Active Substance: SULFAMETHOXAZOLE\TRIMETHOPRIM

REACTIONS (5)
  - Hypothyroidism [Recovering/Resolving]
  - Adrenal insufficiency [Recovered/Resolved]
  - Herpes zoster [Recovering/Resolving]
  - Pneumonia [Recovering/Resolving]
  - Tinea infection [Recovering/Resolving]

NARRATIVE: CASE EVENT DATE: 20161004
